FAERS Safety Report 13055430 (Version 1)
Quarter: 2016Q4

REPORT INFORMATION
  Report Type: Report from Study
  Country: JP (occurrence: JP)
  Receive Date: 20161222
  Receipt Date: 20161222
  Transmission Date: 20170207
  Serious: Yes (Other)
  Sender: FDA-Public Use
  Company Number: JP-MYLANLABS-2016M1056957

PATIENT

DRUGS (2)
  1. FLUOROURACIL. [Suspect]
     Active Substance: FLUOROURACIL
     Indication: NASAL SINUS CANCER
     Dosage: 2000 MG (4 DOSES OF 500 MG/BODY)
     Route: 013
  2. CISPLATIN. [Suspect]
     Active Substance: CISPLATIN
     Indication: NASAL SINUS CANCER
     Dosage: 100MG (3 OR 4 DOSES)
     Route: 013

REACTIONS (1)
  - Mucosal inflammation [Unknown]
